FAERS Safety Report 10488123 (Version 4)
Quarter: 2018Q2

REPORT INFORMATION
  Report Type: Report from Study
  Country: US (occurrence: US)
  Receive Date: 20141002
  Receipt Date: 20180626
  Transmission Date: 20180711
  Serious: Yes (Other)
  Sender: FDA-Public Use
  Company Number: US-ROCHE-1467406

PATIENT
  Age: 8 Year
  Sex: Female
  Weight: 42.2 kg

DRUGS (10)
  1. NUTROPIN AQ [Suspect]
     Active Substance: SOMATROPIN
     Indication: BODY HEIGHT BELOW NORMAL
     Route: 058
     Dates: start: 201112, end: 201302
  2. CALCIUM CARBONATE. [Concomitant]
     Active Substance: CALCIUM CARBONATE
     Route: 048
  3. BACITRACIN. [Concomitant]
     Active Substance: BACITRACIN
     Route: 061
  4. DITROPAN XL [Concomitant]
     Active Substance: OXYBUTYNIN CHLORIDE
     Route: 048
  5. VITAMIN D3 [Concomitant]
     Active Substance: CHOLECALCIFEROL
     Route: 048
  6. NUTROPIN AQ [Suspect]
     Active Substance: SOMATROPIN
     Indication: SMALL FOR DATES BABY
     Route: 058
     Dates: start: 201304, end: 201306
  7. NUTROPIN AQ [Suspect]
     Active Substance: SOMATROPIN
     Indication: GROWTH HORMONE DEFICIENCY
  8. DITROPAN XL [Concomitant]
     Active Substance: OXYBUTYNIN CHLORIDE
     Indication: BLADDER SPASM
     Route: 048
  9. NUTROPIN AQ [Suspect]
     Active Substance: SOMATROPIN
     Indication: HYPOPITUITARISM
     Route: 058
     Dates: start: 201112
  10. ATIVAN [Concomitant]
     Active Substance: LORAZEPAM
     Dosage: TAB BY MOUTH, 1HOUR PRIOR TO PROCEDURE
     Route: 048

REACTIONS (23)
  - Pain [Unknown]
  - Muscle atrophy [Unknown]
  - Blood glucose decreased [Unknown]
  - Areflexia [Unknown]
  - Fatigue [Unknown]
  - Diarrhoea [Unknown]
  - Vitamin D decreased [Unknown]
  - Myopathy [Unknown]
  - Weight increased [Unknown]
  - Injection site pain [Unknown]
  - Skin hyperpigmentation [Not Recovered/Not Resolved]
  - Scoliosis [Not Recovered/Not Resolved]
  - Muscular weakness [Unknown]
  - Gait disturbance [Unknown]
  - Asthenia [Unknown]
  - Peripheral swelling [Recovered/Resolved]
  - Encopresis [Unknown]
  - Mood altered [Unknown]
  - Temperature intolerance [Unknown]
  - Growth failure [Unknown]
  - Incontinence [Recovering/Resolving]
  - Enuresis [Unknown]
  - Breath sounds abnormal [Unknown]

NARRATIVE: CASE EVENT DATE: 201302
